FAERS Safety Report 8512910-4 (Version None)
Quarter: 2012Q3

REPORT INFORMATION
  Report Type: 
  Country: None (occurrence: None)
  Receive Date: 20120716
  Receipt Date: 20120712
  Transmission Date: 20120928
  Serious: Yes (Other)
  Sender: FDA-Public Use
  Company Number: PHHY2012GB059936

PATIENT

DRUGS (1)
  1. TRAMADOL HCL [Suspect]
     Dosage: 200 MG, UNK
     Dates: start: 20120223

REACTIONS (3)
  - RESTLESS LEGS SYNDROME [None]
  - FORMICATION [None]
  - WITHDRAWAL SYNDROME [None]
